FAERS Safety Report 24917870 (Version 1)
Quarter: 2025Q1

REPORT INFORMATION
  Report Type: Spontaneous
  Country: US (occurrence: US)
  Receive Date: 20250203
  Receipt Date: 20250203
  Transmission Date: 20250409
  Serious: No
  Sender: ABBVIE
  Company Number: US-ABBVIE-6113954

PATIENT
  Age: 36 Year

DRUGS (1)
  1. RINVOQ [Suspect]
     Active Substance: UPADACITINIB
     Indication: Product used for unknown indication
     Route: 048
     Dates: start: 20241125

REACTIONS (7)
  - Exfoliative rash [Unknown]
  - Rash erythematous [Unknown]
  - Nausea [Unknown]
  - Asthenia [Unknown]
  - Fatigue [Unknown]
  - Limb discomfort [Unknown]
  - Onychoclasis [Unknown]

NARRATIVE: CASE EVENT DATE: 20241101
